FAERS Safety Report 25670298 (Version 2)
Quarter: 2025Q4

REPORT INFORMATION
  Report Type: Spontaneous
  Country: US (occurrence: US)
  Receive Date: 20250812
  Receipt Date: 20251001
  Transmission Date: 20260118
  Serious: Yes (Death)
  Sender: BIOGEN
  Company Number: US-BIOGEN-2025BI01319910

PATIENT
  Sex: Male

DRUGS (1)
  1. TYSABRI [Suspect]
     Active Substance: NATALIZUMAB
     Indication: Multiple sclerosis
     Route: 050
     Dates: start: 20230228, end: 20240507

REACTIONS (1)
  - Death [Fatal]
